FAERS Safety Report 4342166-8 (Version None)
Quarter: 2004Q1

REPORT INFORMATION
  Report Type: 
  Country: None (occurrence: None)
  Receive Date: 20040329
  Receipt Date: 20031218
  Transmission Date: 20041129
  Serious: No
  Sender: FDA-Public Use
  Company Number: USA031255024

PATIENT
  Sex: Male

DRUGS (1)
  1. STRATTERA [Suspect]
     Dosage: 40 MG/DAY
     Dates: start: 20031211

REACTIONS (4)
  - DRY THROAT [None]
  - FATIGUE [None]
  - FEELING ABNORMAL [None]
  - LIP DRY [None]
